FAERS Safety Report 19850460 (Version 2)
Quarter: 2021Q4

REPORT INFORMATION
  Report Type: Spontaneous
  Country: US (occurrence: US)
  Receive Date: 20210917
  Receipt Date: 20211118
  Transmission Date: 20220303
  Serious: Yes (Disabling, Other)
  Sender: FDA-Public Use
  Company Number: US-SANOFI-00766671

PATIENT
  Age: 62 Year
  Sex: Female

DRUGS (1)
  1. SOLIQUA 100/33 [Suspect]
     Active Substance: INSULIN GLARGINE\LIXISENATIDE
     Indication: Type 2 diabetes mellitus
     Dosage: 46 IU, QD
     Route: 065
     Dates: start: 2020

REACTIONS (3)
  - Blindness [Unknown]
  - Injection site bruising [Unknown]
  - Device operational issue [Unknown]
